FAERS Safety Report 11821948 (Version 4)
Quarter: 2018Q2

REPORT INFORMATION
  Report Type: Spontaneous
  Country: US (occurrence: US)
  Receive Date: 20151210
  Receipt Date: 20180525
  Transmission Date: 20180711
  Serious: No
  Sender: FDA-Public Use
  Company Number: US-JNJFOC-20150722251

PATIENT
  Age: 85 Year
  Sex: Male

DRUGS (18)
  1. IMBRUVICA [Suspect]
     Active Substance: IBRUTINIB
     Indication: CHRONIC LYMPHOCYTIC LEUKAEMIA
     Route: 048
     Dates: start: 20150522, end: 2015
  2. IMBRUVICA [Suspect]
     Active Substance: IBRUTINIB
     Indication: CHRONIC LYMPHOCYTIC LEUKAEMIA
     Route: 048
     Dates: start: 201506
  3. IMBRUVICA [Suspect]
     Active Substance: IBRUTINIB
     Indication: CHRONIC LYMPHOCYTIC LEUKAEMIA
     Route: 048
     Dates: start: 20150824
  4. PRAVASTATIN. [Concomitant]
     Active Substance: PRAVASTATIN
     Dates: start: 20171228
  5. IMBRUVICA [Suspect]
     Active Substance: IBRUTINIB
     Indication: CHRONIC LYMPHOCYTIC LEUKAEMIA
     Route: 048
  6. ALBUTEROL. [Concomitant]
     Active Substance: ALBUTEROL
     Dosage: 2PUFF,QID
     Dates: start: 20160725
  7. SALBUTAMOL SULFATE [Concomitant]
     Active Substance: ALBUTEROL SULFATE
     Route: 045
  8. IPRATROPIUM BROMIDE AND ALBUTEROL SULFATE [Concomitant]
     Active Substance: ALBUTEROL SULFATE\IPRATROPIUM BROMIDE
     Dosage: 0.5 MG-3 MG, 3 ML QID
     Route: 045
     Dates: start: 20171030
  9. CLONAZEPAM. [Concomitant]
     Active Substance: CLONAZEPAM
     Dates: start: 20171228
  10. FUROSEMIDE. [Concomitant]
     Active Substance: FUROSEMIDE
     Dosage: 48 HOURS
     Dates: start: 20170710
  11. SYMBICORT [Concomitant]
     Active Substance: BUDESONIDE\FORMOTEROL FUMARATE DIHYDRATE
     Dosage: 80MCG-4.5 MCG,2 PUFF BID
     Dates: start: 20180115
  12. ALLOPURINOL. [Concomitant]
     Active Substance: ALLOPURINOL
     Dates: start: 20171117
  13. AUGMENTIN [Concomitant]
     Active Substance: AMOXICILLIN\CLAVULANATE POTASSIUM
     Indication: BRONCHITIS
  14. XARELTO [Suspect]
     Active Substance: RIVAROXABAN
     Indication: PRODUCT USED FOR UNKNOWN INDICATION
     Route: 048
     Dates: start: 20180301
  15. TYLENOL 8HR [Concomitant]
     Active Substance: ACETAMINOPHEN
  16. IMBRUVICA [Suspect]
     Active Substance: IBRUTINIB
     Indication: CHRONIC LYMPHOCYTIC LEUKAEMIA
     Route: 048
     Dates: start: 20180301
  17. DIAZEPAM. [Concomitant]
     Active Substance: DIAZEPAM
     Dates: start: 20180301
  18. LOSARTAN POTASSIUM. [Concomitant]
     Active Substance: LOSARTAN POTASSIUM

REACTIONS (7)
  - Heart rate increased [Unknown]
  - Chromaturia [Recovered/Resolved]
  - Fatigue [Unknown]
  - Dizziness [Unknown]
  - Diarrhoea [Recovered/Resolved]
  - Palpitations [Recovered/Resolved]
  - Lethargy [Recovered/Resolved]

NARRATIVE: CASE EVENT DATE: 2015
